FAERS Safety Report 12191775 (Version 2)
Quarter: 2016Q2

REPORT INFORMATION
  Report Type: Spontaneous
  Country: US (occurrence: US)
  Receive Date: 20160318
  Receipt Date: 20160520
  Transmission Date: 20160815
  Serious: No
  Sender: FDA-Public Use
  Company Number: US-PFIZER INC-2016130694

PATIENT
  Age: 85 Year
  Sex: Female
  Weight: 70.31 kg

DRUGS (6)
  1. LOSARTAN. [Concomitant]
     Active Substance: LOSARTAN
     Indication: LIVER DISORDER
     Dosage: 25 MG, 1X/DAY
  2. ALEVE [Concomitant]
     Active Substance: NAPROXEN SODIUM
     Indication: SLEEP DISORDER
     Dosage: 2 DF, 2X/DAY (2 EVERY 12 HOUR)
  3. SYNTHROID [Concomitant]
     Active Substance: LEVOTHYROXINE SODIUM
     Dosage: UNK
     Dates: start: 2003
  4. PREDNISONE. [Concomitant]
     Active Substance: PREDNISONE
     Dosage: UNK
  5. LYRICA [Suspect]
     Active Substance: PREGABALIN
     Indication: DIABETIC NEUROPATHY
     Dosage: 20 MG, 1X/DAY
     Route: 048
     Dates: start: 201502
  6. LYRICA [Suspect]
     Active Substance: PREGABALIN
     Indication: NEUROPATHY PERIPHERAL
     Dosage: 50 MG ONE AT NIGHT (BEFORE BED)
     Route: 048
     Dates: start: 20160203

REACTIONS (4)
  - Pruritus generalised [Not Recovered/Not Resolved]
  - Rash macular [Not Recovered/Not Resolved]
  - Gingival bleeding [Not Recovered/Not Resolved]
  - Vision blurred [Recovered/Resolved]
